FAERS Safety Report 15723868 (Version 1)
Quarter: 2018Q4

REPORT INFORMATION
  Report Type: Spontaneous
  Country: GB (occurrence: GB)
  Receive Date: 20181214
  Receipt Date: 20181214
  Transmission Date: 20190205
  Serious: Yes (Death, Other)
  Sender: FDA-Public Use
  Company Number: PHHY2018GB183628

PATIENT
  Sex: Male

DRUGS (1)
  1. FILGRASTIM [Suspect]
     Active Substance: FILGRASTIM
     Indication: BARTH SYNDROME
     Route: 065

REACTIONS (5)
  - Staphylococcal infection [Unknown]
  - Systemic candida [Unknown]
  - Product use in unapproved indication [Unknown]
  - Enterobacter infection [Unknown]
  - Sepsis [Fatal]
